FAERS Safety Report 5371224-4 (Version None)
Quarter: 2007Q2

REPORT INFORMATION
  Report Type: 
  Country: None (occurrence: None)
  Receive Date: 20070615
  Receipt Date: 20070314
  Transmission Date: 20071010
  Serious: Yes (Hospitalization)
  Sender: FDA-Public Use
  Company Number: 200710709US

PATIENT
  Age: 15 Year
  Sex: Female

DRUGS (2)
  1. LANTUS [Suspect]
  2. OPTICLIK [Suspect]

REACTIONS (2)
  - DRUG DOSE OMISSION [None]
  - HYPERGLYCAEMIA [None]
